FAERS Safety Report 7766566-9 (Version None)
Quarter: 2011Q3

REPORT INFORMATION
  Report Type: 
  Country: None (occurrence: None)
  Receive Date: 20110922
  Receipt Date: 20081001
  Transmission Date: 20111222
  Serious: No
  Sender: FDA-Public Use
  Company Number: 2008BI026215

PATIENT
  Sex: Female
  Weight: 77 kg

DRUGS (1)
  1. TYSABRI [Suspect]
     Indication: MULTIPLE SCLEROSIS
     Route: 042
     Dates: start: 20080122

REACTIONS (4)
  - PAIN IN EXTREMITY [None]
  - ARTHRALGIA [None]
  - MULTIPLE SCLEROSIS [None]
  - SUICIDAL IDEATION [None]
